FAERS Safety Report 4415072-8 (Version None)
Quarter: 2004Q3

REPORT INFORMATION
  Report Type: 
  Country: None (occurrence: None)
  Receive Date: 20040804
  Receipt Date: 20040729
  Transmission Date: 20050211
  Serious: Yes (Life-Threatening)
  Sender: FDA-Public Use
  Company Number: 200412871FR

PATIENT
  Age: 59 Year
  Sex: Female
  Weight: 59 kg

DRUGS (4)
  1. LASILIX SPECIAL [Suspect]
     Route: 048
     Dates: end: 20040702
  2. TRIATEC 2.5 MG [Suspect]
     Route: 048
     Dates: end: 20040702
  3. ALDACTONE [Suspect]
     Route: 048
     Dates: end: 20040702
  4. ESIDRIX [Suspect]
     Route: 048
     Dates: end: 20040702

REACTIONS (2)
  - DEHYDRATION [None]
  - RENAL FAILURE ACUTE [None]
